FAERS Safety Report 7965353-6 (Version None)
Quarter: 2011Q4

REPORT INFORMATION
  Report Type: 
  Country: None (occurrence: None)
  Receive Date: 20111208
  Receipt Date: 20111202
  Transmission Date: 20120403
  Serious: Yes (Hospitalization)
  Sender: FDA-Public Use
  Company Number: PHHO2011GB07308

PATIENT
  Sex: Male
  Weight: 79 kg

DRUGS (9)
  1. FERSAMAL [Concomitant]
     Indication: IRON DEFICIENCY
     Dosage: 210 MG, BID
     Route: 048
     Dates: start: 20111201, end: 20111201
  2. OMEPRAZOLE [Concomitant]
     Indication: ANTACID THERAPY
     Dosage: 20 MG, QD
     Route: 048
     Dates: start: 20110426
  3. ACETAMINOPHEN [Concomitant]
     Indication: BACK PAIN
     Dosage: 1 G, PRN
     Route: 048
     Dates: start: 20110812
  4. IBUPROFEN [Concomitant]
     Indication: BACK PAIN
     Dosage: 400 MG, PRN
     Route: 048
     Dates: start: 20110815
  5. SIMVASTATIN [Concomitant]
     Indication: PROPHYLAXIS
     Dosage: 20 MG, QD
     Route: 048
     Dates: start: 20110803
  6. AFINITOR [Suspect]
     Indication: METASTATIC RENAL CELL CARCINOMA
     Dosage: 10 MG, QD
     Route: 048
     Dates: start: 20110414, end: 20111130
  7. ANTINEOPLASTIC AGENTS [Suspect]
     Indication: METASTATIC RENAL CELL CARCINOMA
  8. TADALAFIL [Concomitant]
     Indication: ERECTILE DYSFUNCTION
     Dosage: 10 MG, PRN
     Route: 048
     Dates: start: 20110617
  9. ADCAL-D3 [Concomitant]
     Indication: SUPPLEMENTATION THERAPY
     Dosage: 1.5 MG, BID
     Route: 048
     Dates: start: 20110721

REACTIONS (12)
  - HAEMOGLOBIN DECREASED [None]
  - BLOOD PRESSURE DECREASED [None]
  - NEOPLASM PROGRESSION [None]
  - PNEUMONITIS [None]
  - LOWER RESPIRATORY TRACT INFECTION [None]
  - DYSPNOEA EXERTIONAL [None]
  - ABDOMINAL PAIN [None]
  - URINARY INCONTINENCE [None]
  - PLEURAL EFFUSION [None]
  - CHEST PAIN [None]
  - DIARRHOEA [None]
  - METASTATIC RENAL CELL CARCINOMA [None]
